FAERS Safety Report 14688293 (Version 2)
Quarter: 2018Q4

REPORT INFORMATION
  Report Type: Spontaneous
  Country: FR (occurrence: FR)
  Receive Date: 20180328
  Receipt Date: 20181026
  Transmission Date: 20190204
  Serious: Yes (Other)
  Sender: FDA-Public Use
  Company Number: FR-MERCK KGAA-2044669

PATIENT
  Sex: Female

DRUGS (1)
  1. EUTHYROX [Suspect]
     Active Substance: LEVOTHYROXINE SODIUM
     Indication: PRODUCT USED FOR UNKNOWN INDICATION

REACTIONS (27)
  - Asthenia [None]
  - Blood thyroid stimulating hormone decreased [None]
  - Mood altered [None]
  - Irritability [None]
  - Feeling abnormal [None]
  - Tension [None]
  - Insomnia [Not Recovered/Not Resolved]
  - Intestinal transit time abnormal [None]
  - Diarrhoea [None]
  - Thyroxine free increased [None]
  - Affective disorder [None]
  - Paranoid personality disorder [None]
  - Impaired work ability [None]
  - Platelet count decreased [None]
  - C-reactive protein increased [None]
  - Migraine [None]
  - Loss of personal independence in daily activities [None]
  - Pain [None]
  - Depression [None]
  - Loss of libido [None]
  - Social avoidant behaviour [None]
  - Weight increased [Not Recovered/Not Resolved]
  - Mood swings [None]
  - Muscle spasms [Not Recovered/Not Resolved]
  - Headache [None]
  - Fatigue [None]
  - Alopecia [None]

NARRATIVE: CASE EVENT DATE: 2017
